FAERS Safety Report 24417969 (Version 2)
Quarter: 2024Q4

REPORT INFORMATION
  Report Type: Spontaneous
  Country: SA (occurrence: SA)
  Receive Date: 20241009
  Receipt Date: 20241018
  Transmission Date: 20250114
  Serious: Yes (Other)
  Sender: BIOMARIN
  Company Number: SA-BIOMARINAP-SA-2024-161007

PATIENT

DRUGS (1)
  1. NAGLAZYME [Suspect]
     Active Substance: GALSULFASE
     Indication: Mucopolysaccharidosis VI
     Route: 065

REACTIONS (1)
  - Nervous system disorder [Unknown]
